FAERS Safety Report 8142144-7 (Version None)
Quarter: 2012Q1

REPORT INFORMATION
  Report Type: 
  Country: None (occurrence: None)
  Receive Date: 20120103
  Receipt Date: 20111110
  Transmission Date: 20120608
  Serious: No
  Sender: FDA-Public Use
  Company Number: AE-2011-002372

PATIENT
  Age: 49 Year
  Sex: Female
  Weight: 35.8342 kg

DRUGS (9)
  1. INCIVEK [Suspect]
     Dosage: 2250 MG (750 MG,2 PILLS THREE TIMES A DAY BY MOUTH),ORAL
     Route: 048
     Dates: start: 20111003
  2. PEGINTERFERON (PEGINTERFERON ALFA-2A) [Concomitant]
  3. RIBAVIRIN [Concomitant]
  4. AMLODIPINE [Concomitant]
  5. PROPRANOLOL [Concomitant]
  6. GABAPENTIN [Concomitant]
  7. ODANSETRON HCL (ONDANSETRON HYDROCHLORIDE) [Concomitant]
  8. RANITIDINE HYDROCHLORIDE [Concomitant]
  9. HYDROCODONE BITARTRATE [Concomitant]

REACTIONS (3)
  - NAUSEA [None]
  - VOMITING [None]
  - INJECTION SITE RASH [None]
